FAERS Safety Report 24547728 (Version 3)
Quarter: 2024Q4

REPORT INFORMATION
  Report Type: Spontaneous
  Country: KR (occurrence: KR)
  Receive Date: 20241025
  Receipt Date: 20241120
  Transmission Date: 20250114
  Serious: Yes (Hospitalization, Other)
  Sender: CELLTRION
  Company Number: KR-CELLTRION INC.-2024KR025806

PATIENT

DRUGS (11)
  1. INFLIXIMAB [Suspect]
     Active Substance: INFLIXIMAB
     Indication: Colitis ulcerative
     Dosage: REMSIMA PEN EVERY TWO WEEKS
     Route: 058
     Dates: start: 20240405
  2. INFLIXIMAB [Suspect]
     Active Substance: INFLIXIMAB
     Dosage: REMSIMA PEN EVERY TWO WEEKS
     Route: 058
     Dates: start: 20241009
  3. INFLIXIMAB [Suspect]
     Active Substance: INFLIXIMAB
     Dosage: UNK
     Route: 058
  4. INFLIXIMAB [Suspect]
     Active Substance: INFLIXIMAB
     Dosage: UNK
     Route: 058
  5. INFLIXIMAB [Suspect]
     Active Substance: INFLIXIMAB
     Indication: Colitis ulcerative
     Dosage: 3 VIAL 300 MG
     Route: 042
     Dates: start: 20240405
  6. INFLIXIMAB [Suspect]
     Active Substance: INFLIXIMAB
     Dosage: 3.5 VIAL 350 MG
     Route: 042
     Dates: start: 20240419
  7. PREDNISOLONE [Concomitant]
     Active Substance: PREDNISOLONE
     Indication: Inflammatory bowel disease
     Dosage: 3 TAB (FREQUENCY: 1)
     Route: 048
     Dates: start: 20230113
  8. PREDNISOLONE [Concomitant]
     Active Substance: PREDNISOLONE
     Dosage: INCREASED TO 20 MG
  9. AZATHIOPRINE [Concomitant]
     Active Substance: AZATHIOPRINE
     Indication: Inflammatory bowel disease
     Dosage: 1 TAB (FREQUENCY: 1)
     Route: 048
     Dates: start: 20240419
  10. PENTASA [Concomitant]
     Active Substance: MESALAMINE
     Indication: Inflammatory bowel disease
     Dosage: 4 TAB (FREQUENCY: 1)
     Route: 048
     Dates: start: 20240616, end: 20240809
  11. ELIQUIS [Concomitant]
     Active Substance: APIXABAN
     Indication: Pulmonary embolism
     Dosage: 1 TAB (FREQUENCY: 2)
     Route: 048
     Dates: start: 20230303

REACTIONS (5)
  - Pneumothorax [Recovered/Resolved]
  - Feeding disorder [Recovered/Resolved]
  - Diarrhoea [Recovered/Resolved]
  - Abdominal pain [Recovered/Resolved]
  - Overdose [Unknown]

NARRATIVE: CASE EVENT DATE: 20240726
